FAERS Safety Report 5843222-5 (Version None)
Quarter: 2008Q3

REPORT INFORMATION
  Report Type: 
  Country: None (occurrence: None)
  Receive Date: 20080813
  Receipt Date: 20080808
  Transmission Date: 20090109
  Serious: Yes (Hospitalization, Other)
  Sender: FDA-Public Use
  Company Number: US-CELGENEUS-163-21880-08071294

PATIENT
  Age: 75 Year
  Sex: Male
  Weight: 76.5 kg

DRUGS (7)
  1. REVLIMID [Suspect]
     Indication: MULTIPLE MYELOMA
     Route: 048
     Dates: start: 20050517
  2. REVLIMID [Suspect]
     Route: 048
     Dates: end: 20061009
  3. DEXAMETHASONE 0.5MG TAB [Suspect]
     Indication: MULTIPLE MYELOMA
     Route: 048
     Dates: start: 20050517, end: 20061006
  4. DEXAMETHASONE 0.5MG TAB [Suspect]
     Route: 048
     Dates: start: 20061016
  5. LEVAQUIN [Concomitant]
     Indication: URINARY TRACT INFECTION
     Route: 065
  6. RED BLOOD CELLS [Concomitant]
     Indication: ANAEMIA
     Dosage: 6 UNITS
     Route: 051
     Dates: start: 20061001
  7. ANTIBIOTICS [Concomitant]
     Indication: URINARY TRACT INFECTION
     Route: 051

REACTIONS (16)
  - ANAEMIA [None]
  - ANOREXIA [None]
  - ASTHENIA [None]
  - AZOTAEMIA [None]
  - BLOOD BILIRUBIN INCREASED [None]
  - BLOOD CREATININE INCREASED [None]
  - DEHYDRATION [None]
  - DIZZINESS [None]
  - DYSPNOEA [None]
  - GLOMERULAR FILTRATION RATE DECREASED [None]
  - HYPOALBUMINAEMIA [None]
  - HYPONATRAEMIA [None]
  - NAUSEA [None]
  - PROTEINURIA [None]
  - RENAL FAILURE [None]
  - URINARY TRACT INFECTION [None]
